FAERS Safety Report 21376179 (Version 2)
Quarter: 2022Q4

REPORT INFORMATION
  Report Type: Spontaneous
  Country: JP (occurrence: JP)
  Receive Date: 20220926
  Receipt Date: 20221013
  Transmission Date: 20230113
  Serious: No
  Sender: FDA-Public Use
  Company Number: JP-GSKNCCC-Case-01574137_AE-62343

PATIENT

DRUGS (1)
  1. SOTROVIMAB [Suspect]
     Active Substance: SOTROVIMAB
     Dosage: DILUTED WITH NORMAL SALINE OF 250 ML

REACTIONS (1)
  - Product preparation issue [Unknown]
